FAERS Safety Report 6083409-2 (Version None)
Quarter: 2009Q1

REPORT INFORMATION
  Report Type: 
  Country: None (occurrence: None)
  Receive Date: 20090213
  Receipt Date: 20090213
  Transmission Date: 20090719
  Serious: No
  Sender: FDA-Public Use
  Company Number: None

PATIENT
  Age: 60 Year
  Sex: Male
  Weight: 69 kg

DRUGS (1)
  1. DAPSONE [Suspect]
     Indication: INFECTION
     Dosage: 100 MG EVERY DAY PO
     Route: 048
     Dates: start: 20080522, end: 20080821

REACTIONS (1)
  - ANAEMIA [None]
